FAERS Safety Report 7650377-9 (Version None)
Quarter: 2011Q3

REPORT INFORMATION
  Report Type: 
  Country: None (occurrence: None)
  Receive Date: 20110719
  Receipt Date: 20110705
  Transmission Date: 20111222
  Serious: Yes (Disabling)
  Sender: FDA-Public Use
  Company Number: 2011MZ000028

PATIENT
  Age: 58 Year
  Sex: Female

DRUGS (2)
  1. BOTULINUM TOXIN TYPE A [Suspect]
     Indication: SKIN WRINKLING
     Dosage: 10 IU;X1;SC
     Route: 058
     Dates: start: 20110318, end: 20110318
  2. PROZAC [Concomitant]

REACTIONS (10)
  - DYSPHAGIA [None]
  - VERTIGO [None]
  - INJECTION SITE PRURITUS [None]
  - DYSPHONIA [None]
  - ASTHENIA [None]
  - HYPOTENSION [None]
  - BRADYCARDIA [None]
  - INJECTION SITE PARAESTHESIA [None]
  - FATIGUE [None]
  - PARAESTHESIA [None]
